FAERS Safety Report 10723478 (Version 2)
Quarter: 2015Q1

REPORT INFORMATION
  Report Type: Report from Study
  Country: JP (occurrence: JP)
  Receive Date: 20150120
  Receipt Date: 20150202
  Transmission Date: 20150721
  Serious: No
  Sender: FDA-Public Use
  Company Number: JP-EMD SERONO-7146796

PATIENT
  Sex: Male
  Weight: 66 kg

DRUGS (9)
  1. GONAL-F [Suspect]
     Active Substance: FOLLITROPIN
     Route: 058
     Dates: start: 20070714
  2. HCG [Suspect]
     Active Substance: GONADOTROPHIN, CHORIONIC
     Route: 065
     Dates: start: 20071008
  3. GONAL-F [Suspect]
     Active Substance: FOLLITROPIN
     Indication: HYPOGONADISM MALE
     Route: 058
     Dates: start: 20070526
  4. HCG [Suspect]
     Active Substance: GONADOTROPHIN, CHORIONIC
     Indication: HYPOGONADISM MALE
     Route: 065
     Dates: start: 20070414
  5. CORTRIL [Concomitant]
     Active Substance: HYDROCORTISONE
     Indication: HYPOPITUITARISM
     Route: 065
  6. DESMOPRESSIN [Concomitant]
     Active Substance: DESMOPRESSIN
     Indication: HYPOPITUITARISM
     Route: 065
  7. GONAL-F [Suspect]
     Active Substance: FOLLITROPIN
     Route: 058
     Dates: start: 20071020, end: 20071220
  8. HCG [Suspect]
     Active Substance: GONADOTROPHIN, CHORIONIC
     Route: 065
     Dates: start: 20070714
  9. THYRADIN S [Concomitant]
     Active Substance: LEVOTHYROXINE SODIUM
     Indication: HYPOPITUITARISM
     Route: 048

REACTIONS (1)
  - Gynaecomastia [Recovered/Resolved]

NARRATIVE: CASE EVENT DATE: 20070714
